FAERS Safety Report 9018300 (Version 2)
Quarter: 2013Q1

REPORT INFORMATION
  Report Type: Report from Study
  Country: US (occurrence: US)
  Receive Date: 20130117
  Receipt Date: 20130130
  Transmission Date: 20140127
  Serious: Yes (Hospitalization, Other)
  Sender: FDA-Public Use
  Company Number: US-ACTELION-A-NJ2012-76282

PATIENT
  Age: 77 Year
  Sex: Female

DRUGS (7)
  1. TRACLEER [Suspect]
     Indication: PULMONARY ARTERIAL HYPERTENSION
     Dosage: 125 MG, BID
     Route: 048
     Dates: start: 200606
  2. VENTAVIS [Concomitant]
     Indication: PULMONARY ARTERIAL HYPERTENSION
     Dosage: UNK
     Route: 055
  3. ADCIRCA [Concomitant]
     Dosage: UNK
  4. ATENOLOL [Concomitant]
     Dosage: 12.5 MG, UNK
  5. ATIVAN [Concomitant]
     Dosage: UNK, PRN
  6. MULTIVITAMIN [Concomitant]
     Dosage: UNK
  7. COUMADIN [Concomitant]

REACTIONS (12)
  - Pulmonary embolism [Recovered/Resolved]
  - Gallbladder disorder [Unknown]
  - Abdominal pain [Not Recovered/Not Resolved]
  - Cholecystectomy [Recovered/Resolved]
  - Pneumonia [Unknown]
  - Platelet count decreased [Not Recovered/Not Resolved]
  - Aspartate aminotransferase increased [Not Recovered/Not Resolved]
  - Blood alkaline phosphatase increased [Not Recovered/Not Resolved]
  - Blood bilirubin increased [Not Recovered/Not Resolved]
  - Weight decreased [Not Recovered/Not Resolved]
  - Diarrhoea [Not Recovered/Not Resolved]
  - Pelvic pain [Not Recovered/Not Resolved]
